FAERS Safety Report 10387437 (Version 2)
Quarter: 2014Q3

REPORT INFORMATION
  Report Type: Spontaneous
  Country: PT (occurrence: PT)
  Receive Date: 20140815
  Receipt Date: 20140829
  Transmission Date: 20150326
  Serious: Yes (Hospitalization, Other)
  Sender: FDA-Public Use
  Company Number: PT-VERTEX PHARMACEUTICALS INC-2014-003472

PATIENT
  Age: 57 Year
  Sex: Female
  Weight: 64.5 kg

DRUGS (7)
  1. INCIVO [Suspect]
     Active Substance: TELAPREVIR
     Indication: HEPATITIS C VIRUS TEST POSITIVE
     Dosage: 750 MG, TID
     Route: 048
     Dates: start: 20120914, end: 20121128
  2. SUCRALFATE. [Concomitant]
     Active Substance: SUCRALFATE
     Indication: APHTHOUS STOMATITIS
     Dosage: UNK
     Route: 048
     Dates: start: 20121030
  3. LEVOTIROXINA [Concomitant]
     Active Substance: LEVOTHYROXINE SODIUM
     Indication: HYPOTHYROIDISM
     Dosage: 0.1 MG, QD
     Route: 048
  4. COPEGUS [Suspect]
     Active Substance: RIBAVIRIN
     Indication: HEPATITIS C VIRUS TEST POSITIVE
     Dosage: DOSAGE FORM: FILM COATED TABLET
     Route: 048
     Dates: start: 20120914, end: 20130311
  5. SERTRALINE [Concomitant]
     Active Substance: SERTRALINE HYDROCHLORIDE
     Indication: DEPRESSION
     Route: 065
  6. ACTIVELLE (ESTRADIOL AND NORETHINDRONE) [Concomitant]
     Indication: POSTMENOPAUSE
     Dosage: 1 DF, QD
     Route: 065
  7. PEGASYS [Suspect]
     Active Substance: PEGINTERFERON ALFA-2A
     Indication: HEPATITIS C VIRUS TEST POSITIVE
     Dosage: 180 ?G, UNK
     Route: 058
     Dates: start: 20120914, end: 20130311

REACTIONS (15)
  - Face oedema [Recovered/Resolved]
  - Adverse event [Recovered/Resolved]
  - Eosinophilia [Recovered/Resolved]
  - Pyrexia [Recovered/Resolved]
  - Pyrexia [Recovered/Resolved]
  - Pruritus [Recovered/Resolved]
  - Rash [Recovered/Resolved]
  - Incorrect dose administered [Unknown]
  - Malaise [Recovered/Resolved]
  - Pallor [Recovered/Resolved]
  - Anaemia [Recovered/Resolved]
  - Skin hypertrophy [Recovered/Resolved]
  - Skin lesion [Recovered/Resolved]
  - Pruritus [Recovered/Resolved]
  - Rash maculo-papular [Recovered/Resolved]

NARRATIVE: CASE EVENT DATE: 2012
